FAERS Safety Report 7240815-8 (Version None)
Quarter: 2011Q1

REPORT INFORMATION
  Report Type: 
  Country: None (occurrence: None)
  Receive Date: 20110120
  Receipt Date: 20110120
  Transmission Date: 20110831
  Serious: No
  Sender: FDA-Public Use
  Company Number: None

PATIENT
  Age: 65 Year
  Sex: Female
  Weight: 50.8029 kg

DRUGS (3)
  1. IBUPROFEN [Suspect]
     Indication: ARTHRALGIA
     Dosage: 400MG Q 4-6 WKS ORAL
     Route: 048
     Dates: start: 20070101, end: 20100101
  2. IBUPROFEN [Suspect]
     Indication: TENDONITIS
     Dosage: 400MG Q 4-6 WKS ORAL
     Route: 048
     Dates: start: 20070101, end: 20100101
  3. GLUCOSAMINE/CHONDROITIN [Suspect]
     Indication: ARTHRALGIA
     Dosage: 1500MG Q AM ORAL
     Route: 048
     Dates: start: 20070101, end: 20100101

REACTIONS (3)
  - CEREBRAL HAEMORRHAGE [None]
  - INSOMNIA [None]
  - EPICONDYLITIS [None]
